FAERS Safety Report 9231715 (Version 2)
Quarter: 2013Q2

REPORT INFORMATION
  Report Type: Spontaneous
  Country: JP (occurrence: JP)
  Receive Date: 20130415
  Receipt Date: 20130510
  Transmission Date: 20140414
  Serious: Yes (Other)
  Sender: FDA-Public Use
  Company Number: JP-BAYER-2013-046375

PATIENT
  Age: 70 Year
  Sex: Female

DRUGS (5)
  1. BAYASPIRIN [Suspect]
     Indication: RETINAL VEIN OCCLUSION
     Dosage: 100 MG, QD
     Route: 048
     Dates: start: 20110120, end: 20130410
  2. FOSAMAC [Suspect]
     Indication: BONE DENSITY DECREASED
     Dosage: 5 MG, DAILY DOSE
     Route: 048
     Dates: start: 20120518, end: 20130410
  3. AVAPRO [Concomitant]
     Dosage: DAILY DOSE 100 MG
     Route: 048
     Dates: start: 20101202, end: 20130410
  4. TOWARAT [Concomitant]
     Dosage: 40 MG, DAILY DOSE
     Route: 048
     Dates: start: 20100901, end: 20130410
  5. ETISEDAN [Concomitant]
     Indication: INSOMNIA
     Dosage: 0.5 MG, DAILY DOSE
     Route: 048
     Dates: start: 20100901, end: 20130410

REACTIONS (1)
  - Stevens-Johnson syndrome [Recovering/Resolving]
